FAERS Safety Report 5569548-0 (Version None)
Quarter: 2007Q4

REPORT INFORMATION
  Report Type: 
  Country: None (occurrence: None)
  Receive Date: 20071220
  Receipt Date: 20071214
  Transmission Date: 20080405
  Serious: Yes (Congenital Anomaly)
  Sender: FDA-Public Use
  Company Number: US-GILEAD-2007-0014643

PATIENT
  Age: 36 Year
  Sex: Female

DRUGS (5)
  1. TRUVADA [Suspect]
     Indication: HIV INFECTION
     Dosage: 200MG/300MG
     Route: 048
     Dates: start: 20050101, end: 20070924
  2. FOSAMPRENAVIR CALCIUM [Suspect]
     Indication: HIV INFECTION
     Route: 048
     Dates: start: 20050101, end: 20070924
  3. RITONAVIR [Suspect]
     Indication: HIV INFECTION
     Route: 048
     Dates: start: 20050101, end: 20070924
  4. LAMIVUDINE + ZIDOVUDINE [Suspect]
     Indication: HIV INFECTION
     Dosage: 600MG/300MG
     Route: 048
     Dates: start: 20071005
  5. LOPINAVIR AND RITONAVIR [Suspect]
     Indication: HIV INFECTION
     Dosage: 800MG/200MG
     Route: 048
     Dates: start: 20071005

REACTIONS (3)
  - ALPHA 1 FOETOPROTEIN INCREASED [None]
  - DRUG EXPOSURE DURING PREGNANCY [None]
  - PREGNANCY [None]
